FAERS Safety Report 24673466 (Version 1)
Quarter: 2024Q4

REPORT INFORMATION
  Report Type: Spontaneous
  Country: US (occurrence: US)
  Receive Date: 20241128
  Receipt Date: 20241128
  Transmission Date: 20250114
  Serious: Yes (Hospitalization)
  Sender: ENDO
  Company Number: US-ENDO USA, INC.-2024-050756

PATIENT
  Age: 64 Year
  Sex: Female

DRUGS (6)
  1. AMILORIDE HYDROCHLORIDE [Suspect]
     Active Substance: AMILORIDE HYDROCHLORIDE
     Indication: Hypertension
     Dosage: UNK UNKNOWN, UNKNOWN
     Route: 065
  2. PEMBROLIZUMAB [Suspect]
     Active Substance: PEMBROLIZUMAB
     Indication: Product used for unknown indication
     Dosage: UNK UNKNOWN, UNKNOWN
     Route: 065
  3. LENVATINIB [Suspect]
     Active Substance: LENVATINIB
     Indication: Product used for unknown indication
     Dosage: UNK UNKNOWN, UNKNOWN
     Route: 065
  4. LISINOPRIL [Concomitant]
     Active Substance: LISINOPRIL
     Indication: Hypertension
     Dosage: UNK UNKNOWN, UNKNOWN (ESCALATING DOSE)
     Route: 065
  5. AMLODIPINE [Concomitant]
     Active Substance: AMLODIPINE BESYLATE
     Indication: Hypertension
     Dosage: UNK UNKNOWN, UNKNOWN (ESCALATING DOSE)
     Route: 065
  6. METOPROLOL [Concomitant]
     Active Substance: METOPROLOL
     Indication: Hypertension
     Dosage: UNK UNKNOWN, UNKNOWN (ESCALATING DOSE)
     Route: 065

REACTIONS (1)
  - Hypercalcaemia [Recovered/Resolved]
